FAERS Safety Report 5506018-X (Version None)
Quarter: 2007Q4

REPORT INFORMATION
  Report Type: 
  Country: None (occurrence: None)
  Receive Date: 20071101
  Receipt Date: 20071101
  Transmission Date: 20080405
  Serious: Yes (Other)
  Sender: FDA-Public Use
  Company Number: None

PATIENT
  Sex: Female
  Weight: 83.9154 kg

DRUGS (2)
  1. NYSTATIN [Suspect]
     Indication: CANDIDIASIS
     Dosage: 400,000 TID PO
     Route: 048
     Dates: start: 20060715, end: 20070917
  2. LIQUID BENADRYL DYE-FREE [Concomitant]

REACTIONS (1)
  - ANGIOEDEMA [None]
